FAERS Safety Report 16036216 (Version 1)
Quarter: 2019Q1

REPORT INFORMATION
  Report Type: Spontaneous
  Country: US (occurrence: US)
  Receive Date: 20190305
  Receipt Date: 20190305
  Transmission Date: 20190418
  Serious: No
  Sender: FDA-Public Use
  Company Number: US-ALLERGAN-1815415US

PATIENT
  Sex: Female

DRUGS (1)
  1. ESTRACE [Suspect]
     Active Substance: ESTRADIOL
     Indication: INADEQUATE LUBRICATION
     Dosage: UNK, BI-WEEKLY
     Route: 067

REACTIONS (2)
  - Off label use [Unknown]
  - Therapeutic response unexpected [Unknown]
